FAERS Safety Report 5278624-1 (Version None)
Quarter: 2007Q1

REPORT INFORMATION
  Report Type: 
  Country: None (occurrence: None)
  Receive Date: 20070322
  Receipt Date: 20070308
  Transmission Date: 20070707
  Serious: No
  Sender: FDA-Public Use
  Company Number: TPA2007A00481

PATIENT
  Age: 56 Year
  Sex: Male
  Weight: 81.6475 kg

DRUGS (3)
  1. ROZEREM [Suspect]
     Indication: SLEEP DISORDER
     Dosage: SEE IMAGE
     Route: 048
     Dates: start: 20060901
  2. VYTORIN (SIMVASTATIN, EZETIMIBE) [Concomitant]
  3. XANAX [Concomitant]

REACTIONS (3)
  - INCORRECT DOSE ADMINISTERED [None]
  - POOR QUALITY SLEEP [None]
  - TREATMENT NONCOMPLIANCE [None]
